FAERS Safety Report 8507092-9 (Version None)
Quarter: 2012Q3

REPORT INFORMATION
  Report Type: 
  Country: None (occurrence: None)
  Receive Date: 20120712
  Receipt Date: 20120703
  Transmission Date: 20120928
  Serious: No
  Sender: FDA-Public Use
  Company Number: US-009507513-1207USA000431

PATIENT

DRUGS (5)
  1. ZIOPTAN [Suspect]
     Indication: GLAUCOMA
     Dosage: UNK
     Route: 047
     Dates: start: 20120623, end: 20120625
  2. ARMOUR THYROID TABLETS [Concomitant]
  3. HYDROCHLOROTHIAZIDE [Concomitant]
  4. COMBIGAN [Concomitant]
  5. ESTRACE [Concomitant]

REACTIONS (2)
  - OCULAR HYPERAEMIA [None]
  - EYE PAIN [None]
